FAERS Safety Report 6694416-0 (Version None)
Quarter: 2010Q2

REPORT INFORMATION
  Report Type: 
  Country: None (occurrence: None)
  Receive Date: 20100423
  Receipt Date: 20100414
  Transmission Date: 20101027
  Serious: Yes (Other)
  Sender: FDA-Public Use
  Company Number: CA-JNJFOC-20100405329

PATIENT
  Sex: Female
  Weight: 64 kg

DRUGS (5)
  1. REMICADE [Suspect]
     Indication: CROHN'S DISEASE
     Dosage: WEEK 6
     Route: 042
  2. REMICADE [Suspect]
     Dosage: WEEK 2
     Route: 042
  3. REMICADE [Suspect]
     Dosage: WEEK 0
     Route: 042
  4. BENADRYL [Concomitant]
     Dosage: ROUTE NOTED AS PO/IV
  5. SOLU-CORTEF [Concomitant]
     Route: 042

REACTIONS (2)
  - DIARRHOEA [None]
  - INCONTINENCE [None]
